FAERS Safety Report 23575918 (Version 1)
Quarter: 2024Q1

REPORT INFORMATION
  Report Type: Spontaneous
  Country: CN (occurrence: CN)
  Receive Date: 20240228
  Receipt Date: 20240228
  Transmission Date: 20240410
  Serious: Yes (Hospitalization)
  Sender: FDA-Public Use
  Company Number: CN-PFIZER INC-PV202400025415

PATIENT
  Age: 26 Year
  Sex: Female
  Weight: 60 kg

DRUGS (2)
  1. CYTARABINE [Suspect]
     Active Substance: CYTARABINE
     Indication: Chemotherapy
     Dosage: 0.15 G, 1X/DAY
     Route: 041
     Dates: start: 20240118, end: 20240127
  2. OMACETAXINE MEPESUCCINATE [Suspect]
     Active Substance: OMACETAXINE MEPESUCCINATE
     Indication: Chemotherapy
     Dosage: 3 MG, 1X/DAY
     Route: 041
     Dates: start: 20240118, end: 20240127

REACTIONS (2)
  - Myelosuppression [Recovering/Resolving]
  - Mucosal haemorrhage [Recovering/Resolving]

NARRATIVE: CASE EVENT DATE: 20240203
